FAERS Safety Report 9675171 (Version 2)
Quarter: 2013Q4

REPORT INFORMATION
  Report Type: Spontaneous
  Country: US (occurrence: None)
  Receive Date: 20131105
  Receipt Date: 20131122
  Transmission Date: 20140711
  Serious: Yes (Disabling)
  Sender: FDA-Public Use
  Company Number: HA13-377-AE

PATIENT
  Age: 55 Year
  Sex: Male
  Weight: 81.65 kg

DRUGS (5)
  1. ALPRAZOLAM [Suspect]
     Indication: PANIC ATTACK
     Dosage: 1 TABLET
     Route: 048
  2. ALPRAZOLAM [Suspect]
     Indication: SLEEP DISORDER
     Dosage: 1 TABLET
     Route: 048
  3. NORCO [Concomitant]
  4. MS CONTIN [Concomitant]
  5. ALPRAZOLAM ER [Concomitant]

REACTIONS (5)
  - Disability [None]
  - Drug ineffective [None]
  - Product substitution issue [None]
  - Dyspnoea [None]
  - Product quality issue [None]
